FAERS Safety Report 11688365 (Version 1)
Quarter: 2015Q4

REPORT INFORMATION
  Report Type: Spontaneous
  Country: HR (occurrence: HR)
  Receive Date: 20151031
  Receipt Date: 20151031
  Transmission Date: 20160304
  Serious: Yes (Other)
  Sender: FDA-Public Use
  Company Number: HR-TEVA-603579ISR

PATIENT
  Age: 68 Year
  Sex: Male

DRUGS (3)
  1. CALCIUM FOLINATE [Concomitant]
     Active Substance: LEUCOVORIN CALCIUM
     Indication: HEPATIC CANCER METASTATIC
     Route: 041
     Dates: start: 20150901, end: 20150902
  2. FLUOROURACIL PLIVA [Concomitant]
     Active Substance: FLUOROURACIL
     Indication: HEPATIC CANCER METASTATIC
     Route: 041
     Dates: start: 20150901, end: 20150902
  3. OXALIPLATIN PLIVA [Suspect]
     Active Substance: OXALIPLATIN
     Indication: HEPATIC CANCER METASTATIC
     Route: 041
     Dates: start: 20150901, end: 20150901

REACTIONS (1)
  - Polyneuropathy [Not Recovered/Not Resolved]

NARRATIVE: CASE EVENT DATE: 20150901
